FAERS Safety Report 23180249 (Version 1)
Quarter: 2023Q4

REPORT INFORMATION
  Report Type: Spontaneous
  Country: DE (occurrence: DE)
  Receive Date: 20231114
  Receipt Date: 20231114
  Transmission Date: 20240110
  Serious: Yes (Death, Other)
  Sender: FDA-Public Use
  Company Number: DE-AMGEN-DEUSP2023199954

PATIENT

DRUGS (1)
  1. CARFILZOMIB [Suspect]
     Active Substance: CARFILZOMIB
     Indication: Plasma cell myeloma
     Dosage: UNK
     Route: 065

REACTIONS (17)
  - Death [Fatal]
  - Plasma cell myeloma [Fatal]
  - Infection [Fatal]
  - Plasma cell myeloma refractory [Unknown]
  - Anaemia [Unknown]
  - Leukopenia [Unknown]
  - Neutropenia [Unknown]
  - Pancytopenia [Unknown]
  - Thrombocytopenia [Unknown]
  - Toxicity to various agents [Unknown]
  - Visual acuity reduced [Unknown]
  - Keratopathy [Unknown]
  - Bronchospasm [Unknown]
  - Adverse event [Unknown]
  - Ocular toxicity [Unknown]
  - Therapy non-responder [Unknown]
  - Infusion related reaction [Unknown]
